FAERS Safety Report 5349421-3 (Version None)
Quarter: 2007Q2

REPORT INFORMATION
  Report Type: 
  Country: None (occurrence: None)
  Receive Date: 20070607
  Receipt Date: 20070531
  Transmission Date: 20071010
  Serious: Yes (Other)
  Sender: FDA-Public Use
  Company Number: FR-ROCHE-500424

PATIENT
  Age: 40 Year
  Sex: Female

DRUGS (2)
  1. PEGASYS [Suspect]
     Indication: HEPATITIS C
     Dosage: FORMULATION: INJECTABLE SOLUTION. STOPPED AFTER SECOND INJECTION.
     Route: 065
  2. COPEGUS [Suspect]
     Indication: HEPATITIS C
     Dosage: STOPPED TOGETHER WITH PEG-INTERFERON ALFA 2A.
     Route: 065

REACTIONS (1)
  - EPILEPSY [None]
